FAERS Safety Report 4749125-1 (Version None)
Quarter: 2005Q3

REPORT INFORMATION
  Report Type: 
  Country: None (occurrence: None)
  Receive Date: 20050819
  Receipt Date: 20050812
  Transmission Date: 20060218
  Serious: Yes (Hospitalization)
  Sender: FDA-Public Use
  Company Number: PHBS2005CH11762

PATIENT
  Age: 45 Year
  Sex: Male

DRUGS (5)
  1. LEPONEX [Suspect]
     Dosage: 150 MG/D
     Route: 065
     Dates: start: 20050127, end: 20050606
  2. ANAFRANIL [Concomitant]
     Dosage: 300 MG/D
     Route: 048
  3. TOLVON [Concomitant]
     Dosage: 240 MG/D
     Route: 048
  4. SAROTEN [Concomitant]
     Dosage: 200 MG/D
     Route: 048
  5. XANAX [Concomitant]
     Dosage: 2.5 MG/D
     Route: 048

REACTIONS (7)
  - CARDIAC FAILURE [None]
  - DYSPNOEA [None]
  - EJECTION FRACTION DECREASED [None]
  - FATIGUE [None]
  - HYPOKINESIA [None]
  - ORTHOPNOEA [None]
  - PERFORMANCE STATUS DECREASED [None]
